FAERS Safety Report 23019813 (Version 1)
Quarter: 2023Q4

REPORT INFORMATION
  Report Type: Spontaneous
  Country: US (occurrence: None)
  Receive Date: 20231002
  Receipt Date: 20231002
  Transmission Date: 20240109
  Serious: Yes (Disabling)
  Sender: FDA-Public Use
  Company Number: None

PATIENT
  Age: 25 Year
  Sex: Male
  Weight: 81 kg

DRUGS (13)
  1. FINASTERIDE [Suspect]
     Active Substance: FINASTERIDE
     Indication: Androgenetic alopecia
     Dates: start: 20220501, end: 20220502
  2. CYANOCOBALAMIN\DEXPANTHENOL\NIACINAMIDE\PYRIDOXINE HYDROCHLORIDE\RIBOF [Concomitant]
     Active Substance: CYANOCOBALAMIN\DEXPANTHENOL\NIACINAMIDE\PYRIDOXINE HYDROCHLORIDE\RIBOFLAVIN 5^-PHOSPHATE SODIUM\THIA
  3. Irish Sea Moss [Concomitant]
  4. Bimuno [Concomitant]
  5. AG1 [Concomitant]
  6. Lactobacillus Strains [Concomitant]
  7. HERBALS\TURMERIC [Concomitant]
     Active Substance: HERBALS\TURMERIC
  8. CURCUMIN [Concomitant]
     Active Substance: CURCUMIN
  9. Korean Panax Ginseng [Concomitant]
  10. Organic Mushroom Complex [Concomitant]
  11. Organic Resveratrol [Concomitant]
  12. MANGANESE [Concomitant]
     Active Substance: MANGANESE CHLORIDE
  13. MAGNESIUM [Concomitant]
     Active Substance: MAGNESIUM

REACTIONS (16)
  - Genital hypoaesthesia [None]
  - Penile burning sensation [None]
  - Genital burning sensation [None]
  - Penile pain [None]
  - Testicular pain [None]
  - Testicular atrophy [None]
  - Libido decreased [None]
  - Erectile dysfunction [None]
  - Erectile dysfunction [None]
  - Erectile dysfunction [None]
  - Trichorrhexis [None]
  - Muscle tightness [None]
  - Depression [None]
  - Anxiety [None]
  - Myalgia [None]
  - Orgasmic sensation decreased [None]

NARRATIVE: CASE EVENT DATE: 20220501
